FAERS Safety Report 15879867 (Version 1)
Quarter: 2019Q1

REPORT INFORMATION
  Report Type: Spontaneous
  Country: US (occurrence: US)
  Receive Date: 20190126
  Receipt Date: 20190126
  Transmission Date: 20190417
  Serious: No
  Sender: FDA-Public Use
  Company Number: None

PATIENT
  Age: 36 Year
  Sex: Female
  Weight: 71.21 kg

DRUGS (1)
  1. PARAGARD T 380A [Suspect]
     Active Substance: COPPER

REACTIONS (5)
  - Device dislocation [None]
  - Abdominal pain [None]
  - Infertility female [None]
  - Complication associated with device [None]
  - Device breakage [None]

NARRATIVE: CASE EVENT DATE: 20170517
